FAERS Safety Report 4386726-7 (Version None)
Quarter: 2004Q2

REPORT INFORMATION
  Report Type: 
  Country: None (occurrence: None)
  Receive Date: 20040629
  Receipt Date: 20040619
  Transmission Date: 20050107
  Serious: Yes (Hospitalization, Disabling)
  Sender: FDA-Public Use
  Company Number: US-MERCK-0406USA01887

PATIENT
  Age: 72 Year
  Sex: Male

DRUGS (3)
  1. FOSAMAX [Suspect]
     Indication: OSTEOPOROSIS
     Route: 048
     Dates: start: 20020101, end: 20040601
  2. ASPIRIN [Concomitant]
     Route: 065
     Dates: start: 20030101
  3. PLAVIX [Concomitant]
     Route: 065
     Dates: start: 20030101

REACTIONS (5)
  - ANAEMIA [None]
  - DIVERTICULUM INTESTINAL HAEMORRHAGIC [None]
  - GASTRITIS [None]
  - OESOPHAGITIS [None]
  - STOMACH DISCOMFORT [None]
